FAERS Safety Report 9374694 (Version 3)
Quarter: 2013Q4

REPORT INFORMATION
  Report Type: Spontaneous
  Country: GB (occurrence: GB)
  Receive Date: 20130628
  Receipt Date: 20131111
  Transmission Date: 20140711
  Serious: Yes (Other)
  Sender: FDA-Public Use
  Company Number: GB-ROCHE-1242330

PATIENT
  Age: 54 Year
  Sex: Female
  Weight: 72 kg

DRUGS (1)
  1. XOLAIR [Suspect]
     Indication: PRODUCT USED FOR UNKNOWN INDICATION
     Route: 058

REACTIONS (3)
  - Tremor [Recovering/Resolving]
  - Injection site inflammation [Unknown]
  - Dysarthria [Unknown]
